FAERS Safety Report 8009050-X (Version None)
Quarter: 2011Q4

REPORT INFORMATION
  Report Type: 
  Country: None (occurrence: None)
  Receive Date: 20111227
  Receipt Date: 20111212
  Transmission Date: 20120403
  Serious: Yes (Hospitalization)
  Sender: FDA-Public Use
  Company Number: US-WATSON-2011-22219

PATIENT
  Age: 22 Year
  Sex: Male

DRUGS (1)
  1. TESTOSTERONE CYPIONATE [Suspect]
     Indication: HYPOGONADISM MALE
     Dosage: UNK
     Route: 030

REACTIONS (1)
  - HAEMANGIOMA [None]
